FAERS Safety Report 13501182 (Version 2)
Quarter: 2017Q4

REPORT INFORMATION
  Report Type: Spontaneous
  Country: US (occurrence: US)
  Receive Date: 20170501
  Receipt Date: 20171027
  Transmission Date: 20180320
  Serious: Yes (Other)
  Sender: FDA-Public Use
  Company Number: US-ROCHE-1872059

PATIENT
  Age: 75 Year
  Sex: Male

DRUGS (1)
  1. ESBRIET [Suspect]
     Active Substance: PIRFENIDONE
     Indication: IDIOPATHIC PULMONARY FIBROSIS
     Route: 048
     Dates: start: 20150917, end: 201612

REACTIONS (6)
  - Fatigue [Recovering/Resolving]
  - Decreased appetite [Recovering/Resolving]
  - Diarrhoea [Recovered/Resolved]
  - Food aversion [Recovering/Resolving]
  - Weight decreased [Recovering/Resolving]
  - Dyspnoea [Recovering/Resolving]

NARRATIVE: CASE EVENT DATE: 201612
